FAERS Safety Report 10418542 (Version 1)
Quarter: 2014Q3

REPORT INFORMATION
  Report Type: Spontaneous
  Country: GB (occurrence: None)
  Receive Date: 20140827
  Receipt Date: 20140827
  Transmission Date: 20150326
  Serious: Yes (Hospitalization)
  Sender: FDA-Public Use
  Company Number: AUR-APL-2014-09030

PATIENT
  Age: 71 Year
  Sex: Female
  Weight: 69 kg

DRUGS (11)
  1. ATENOLOL (ATENOLOL) [Concomitant]
     Active Substance: ATENOLOL
  2. SOLIFENACIN (SOLIFENACIN) [Concomitant]
     Active Substance: SOLIFENACIN
  3. ASPIRIN (ACETYLSALICYLIC ACID) [Concomitant]
     Active Substance: ASPIRIN
  4. SIMVASTATIN 40 MG (SIMVASTATIN) [Suspect]
     Active Substance: SIMVASTATIN
     Indication: PRODUCT USED FOR UNKNOWN INDICATION
     Route: 048
     Dates: end: 20140723
  5. DOXAZOCIN (DOXAZOSIN MESILATE) [Concomitant]
  6. LANSOPRAZOLE (LANSOPRAZOLE) [Concomitant]
     Active Substance: LANSOPRAZOLE
  7. PIOGLITAZONE (PIOGLITAZONE) [Concomitant]
     Active Substance: PIOGLITAZONE
  8. ALLOPURINOL (ALLOPURINOL) [Concomitant]
     Active Substance: ALLOPURINOL
  9. LEVOTHYROXINE (LEVOTHYROXINE) [Concomitant]
     Active Substance: LEVOTHYROXINE
  10. METFORMIN [Concomitant]
     Active Substance: METFORMIN HYDROCHLORIDE
  11. PERINDOPRIL ERBUMINE (PERINDOPRIL ERBUMINE) [Concomitant]

REACTIONS (2)
  - Rhabdomyolysis [None]
  - Pain in extremity [None]

NARRATIVE: CASE EVENT DATE: 20140721
